FAERS Safety Report 5517920-7 (Version None)
Quarter: 2007Q4

REPORT INFORMATION
  Report Type: 
  Country: None (occurrence: None)
  Receive Date: 20071115
  Receipt Date: 20071107
  Transmission Date: 20080405
  Serious: Yes (Death, Life-Threatening, Hospitalization)
  Sender: FDA-Public Use
  Company Number: CO-AVENTIS-200719390GDDC

PATIENT
  Age: 72 Year
  Sex: Female
  Weight: 48 kg

DRUGS (5)
  1. RPR 109881A [Suspect]
     Indication: PANCREATIC CARCINOMA
     Dosage: FREQUENCY: CYCLICALLY
     Route: 042
     Dates: start: 20071002, end: 20071002
  2. EUTIROX [Concomitant]
     Dates: end: 20071006
  3. PANCREOFLAT [Concomitant]
     Dates: end: 20071006
  4. MYLANTA [Concomitant]
     Dates: end: 20071006
  5. FLUOROURACIL [Suspect]

REACTIONS (5)
  - ANAEMIA [None]
  - HEPATIC ENCEPHALOPATHY [None]
  - NEUTROPENIA [None]
  - RENAL FAILURE [None]
  - THROMBOCYTOPENIA [None]
